FAERS Safety Report 6174460-2 (Version None)
Quarter: 2009Q2

REPORT INFORMATION
  Report Type: 
  Country: None (occurrence: None)
  Receive Date: 20090430
  Receipt Date: 20080616
  Transmission Date: 20091009
  Serious: No
  Sender: FDA-Public Use
  Company Number: US-ASTRAZENECA-2008UW12152

PATIENT
  Age: 71 Year
  Sex: Female

DRUGS (10)
  1. NEXIUM [Suspect]
     Indication: HIATUS HERNIA
     Route: 048
     Dates: start: 20060101
  2. SYNTHROID [Concomitant]
  3. METOPROLOL TARTRATE [Concomitant]
     Route: 048
  4. ISOSORBIDE DINITRATE [Concomitant]
     Route: 048
  5. ASPIRIN [Concomitant]
  6. LIPITOR [Concomitant]
  7. XANAX [Concomitant]
  8. VITAMIN D [Concomitant]
  9. HYDROCORTISONE CREAM [Concomitant]
  10. ZANTAC [Concomitant]

REACTIONS (4)
  - ERYTHEMA [None]
  - PRURITUS [None]
  - RASH [None]
  - URTICARIA [None]
